FAERS Safety Report 12660370 (Version 1)
Quarter: 2016Q3

REPORT INFORMATION
  Report Type: Spontaneous
  Country: US (occurrence: US)
  Receive Date: 20160817
  Receipt Date: 20160817
  Transmission Date: 20161109
  Serious: Yes (Other)
  Sender: FDA-Public Use
  Company Number: US-ALKEM LABORATORIES LIMITED-US-ALKEM-2016-00119

PATIENT
  Age: 80 Year
  Sex: Female

DRUGS (10)
  1. MYCOPHENOLATE MOFETIL. [Suspect]
     Active Substance: MYCOPHENOLATE MOFETIL
     Indication: NEURODERMATITIS
  2. CICLOSPORIN [Suspect]
     Active Substance: CYCLOSPORINE
     Indication: NEURODERMATITIS
     Dosage: UNKNOWN
  3. CICLOSPORIN [Suspect]
     Active Substance: CYCLOSPORINE
     Indication: ECZEMA
     Dosage: UNKNOWN
  4. ACITRETIN. [Concomitant]
     Active Substance: ACITRETIN
     Indication: ECZEMA
     Dosage: UNKNOWN
  5. TRIAMCINOLONE [Concomitant]
     Active Substance: TRIAMCINOLONE
     Indication: ECZEMA
     Dosage: UNKNOWN
     Route: 026
  6. METHOTREXATE. [Concomitant]
     Active Substance: METHOTREXATE
     Indication: ECZEMA
     Dosage: UNKNOWN
     Route: 026
  7. MYCOPHENOLATE MOFETIL. [Suspect]
     Active Substance: MYCOPHENOLATE MOFETIL
     Indication: ECZEMA
     Dosage: UNKNOWN
  8. ACITRETIN. [Concomitant]
     Active Substance: ACITRETIN
     Indication: NEURODERMATITIS
  9. METHOTREXATE. [Concomitant]
     Active Substance: METHOTREXATE
     Indication: NEURODERMATITIS
  10. TRIAMCINOLONE [Concomitant]
     Active Substance: TRIAMCINOLONE
     Indication: NEURODERMATITIS

REACTIONS (6)
  - Squamous cell carcinoma [Recovering/Resolving]
  - Condition aggravated [Recovering/Resolving]
  - Drug ineffective [None]
  - Neurodermatitis [None]
  - Keratoacanthoma [Recovering/Resolving]
  - Actinic keratosis [None]
